FAERS Safety Report 21302706 (Version 1)
Quarter: 2022Q3

REPORT INFORMATION
  Report Type: Spontaneous
  Country: US (occurrence: US)
  Receive Date: 20220907
  Receipt Date: 20220907
  Transmission Date: 20221027
  Serious: Yes (Hospitalization, Other)
  Sender: FDA-Public Use
  Company Number: US-AMGEN-USASP2022149458

PATIENT
  Age: 14 Year
  Sex: Male

DRUGS (2)
  1. INFLIXIMAB [Suspect]
     Active Substance: INFLIXIMAB
     Indication: Multisystem inflammatory syndrome in children
     Dosage: 10 MILLIGRAM/KILOGRAM
     Route: 065
  2. IMMUNE GLOBULIN NOS [Concomitant]
     Active Substance: IMMUNE GLOBULIN NOS
     Indication: Multisystem inflammatory syndrome in children
     Route: 042

REACTIONS (4)
  - Myocardial necrosis marker increased [Unknown]
  - Coronary artery dilatation [Unknown]
  - Abdominal pain [Unknown]
  - Off label use [Unknown]
